FAERS Safety Report 22331887 (Version 9)
Quarter: 2023Q4

REPORT INFORMATION
  Report Type: Spontaneous
  Country: US (occurrence: US)
  Receive Date: 20230517
  Receipt Date: 20231011
  Transmission Date: 20240110
  Serious: No
  Sender: FDA-Public Use
  Company Number: US-PFIZER INC-PV202300085312

PATIENT
  Age: 9 Year
  Sex: Female
  Weight: 28.571 kg

DRUGS (2)
  1. GENOTROPIN [Suspect]
     Active Substance: SOMATROPIN
     Indication: Growth disorder
     Dosage: 1.2 MG, DAILY
  2. GENOTROPIN [Suspect]
     Active Substance: SOMATROPIN
     Dosage: 1.1 MG
     Dates: start: 202303

REACTIONS (5)
  - Accidental exposure to product [Unknown]
  - Exposure via skin contact [Unknown]
  - Device leakage [Unknown]
  - Device mechanical issue [Unknown]
  - Device malfunction [Unknown]
